FAERS Safety Report 17327450 (Version 1)
Quarter: 2020Q1

REPORT INFORMATION
  Report Type: Spontaneous
  Country: IT (occurrence: IT)
  Receive Date: 20200127
  Receipt Date: 20200127
  Transmission Date: 20200409
  Serious: Yes (Other)
  Sender: FDA-Public Use
  Company Number: IT-SAMSUNG BIOEPIS-SB-2020-01572

PATIENT
  Age: 43 Year
  Sex: Male
  Weight: 74 kg

DRUGS (1)
  1. FLIXABI [Suspect]
     Active Substance: INFLIXIMAB
     Indication: PRODUCT USED FOR UNKNOWN INDICATION
     Route: 065
     Dates: start: 20190509, end: 20190709

REACTIONS (3)
  - Malaise [Unknown]
  - Pain in extremity [Unknown]
  - Product substitution issue [Unknown]
